FAERS Safety Report 23664883 (Version 1)
Quarter: 2024Q1

REPORT INFORMATION
  Report Type: Report from Study
  Country: US (occurrence: US)
  Receive Date: 20240322
  Receipt Date: 20240322
  Transmission Date: 20240410
  Serious: Yes (Other)
  Sender: FDA-Public Use
  Company Number: US-BIOGEN-2024BI01256119

PATIENT
  Sex: Female

DRUGS (1)
  1. TYSABRI [Suspect]
     Active Substance: NATALIZUMAB
     Indication: Multiple sclerosis
     Route: 050
     Dates: start: 20210121

REACTIONS (4)
  - Blindness transient [Recovered/Resolved]
  - Nasopharyngitis [Unknown]
  - Muscular weakness [Unknown]
  - Musculoskeletal disorder [Unknown]
